FAERS Safety Report 7287656-3 (Version None)
Quarter: 2011Q1

REPORT INFORMATION
  Report Type: 
  Country: None (occurrence: None)
  Receive Date: 20110208
  Receipt Date: 20110208
  Transmission Date: 20110831
  Serious: Yes (Life-Threatening, Other)
  Sender: FDA-Public Use
  Company Number: None

PATIENT
  Sex: Female
  Weight: 55.3388 kg

DRUGS (2)
  1. CRESTOR [Suspect]
     Indication: BLOOD CHOLESTEROL INCREASED
     Dosage: 10 MG 1X DAILY PO (9 TABLETS IN 2-3 WEEKS)
     Route: 048
     Dates: start: 20101201, end: 20101230
  2. LOVASTATIN [Suspect]
     Indication: BLOOD CHOLESTEROL INCREASED
     Dosage: 1X DAILY PO (LESS THAN 1 WEEK)
     Route: 048
     Dates: start: 20100101, end: 20100106

REACTIONS (11)
  - FLATULENCE [None]
  - BLOOD CHOLESTEROL INCREASED [None]
  - MUSCULAR WEAKNESS [None]
  - URINE ODOUR ABNORMAL [None]
  - HEADACHE [None]
  - UNEVALUABLE EVENT [None]
  - ABDOMINAL PAIN UPPER [None]
  - CHROMATURIA [None]
  - DIZZINESS [None]
  - RENAL FAILURE [None]
  - BACK PAIN [None]
